FAERS Safety Report 25497458 (Version 2)
Quarter: 2025Q3

REPORT INFORMATION
  Report Type: Spontaneous
  Country: JP (occurrence: JP)
  Receive Date: 20250701
  Receipt Date: 20250829
  Transmission Date: 20251021
  Serious: Yes (Other)
  Sender: GALDERMA
  Company Number: JP-GALDERMA-JP2025011178

PATIENT

DRUGS (5)
  1. NEMOLIZUMAB [Suspect]
     Active Substance: NEMOLIZUMAB
     Indication: Neurodermatitis
     Route: 058
     Dates: start: 20250421, end: 20250421
  2. NEMOLIZUMAB [Suspect]
     Active Substance: NEMOLIZUMAB
     Route: 058
     Dates: start: 20250519, end: 20250519
  3. ALLEGRA [Concomitant]
     Active Substance: FEXOFENADINE HYDROCHLORIDE
     Indication: Neurodermatitis
     Route: 048
     Dates: start: 20250401
  4. EURAX [Concomitant]
     Active Substance: CROTAMITON
     Indication: Neurodermatitis
     Route: 061
     Dates: start: 20250421
  5. Myser [Concomitant]
     Indication: Neurodermatitis
     Route: 061
     Dates: start: 20250421

REACTIONS (2)
  - Erythema multiforme [Recovered/Resolved]
  - Weight increased [Unknown]

NARRATIVE: CASE EVENT DATE: 20250428
